FAERS Safety Report 13457414 (Version 1)
Quarter: 2017Q2

REPORT INFORMATION
  Report Type: Spontaneous
  Country: US (occurrence: US)
  Receive Date: 20170419
  Receipt Date: 20170419
  Transmission Date: 20170830
  Serious: Yes (Other)
  Sender: FDA-Public Use
  Company Number: None

PATIENT
  Age: 60 Year
  Sex: Female
  Weight: 55.39 kg

DRUGS (2)
  1. NACALA [Concomitant]
  2. MEPOLIZUMAB, 100 MG [Suspect]
     Active Substance: MEPOLIZUMAB
     Indication: ASTHMA
     Route: 058

REACTIONS (1)
  - Eosinophilic myocarditis [None]

NARRATIVE: CASE EVENT DATE: 20161212
